FAERS Safety Report 9516463 (Version 2)
Quarter: 2014Q1

REPORT INFORMATION
  Report Type: Spontaneous
  Country: US (occurrence: None)
  Receive Date: 20130305
  Receipt Date: 20140306
  Transmission Date: 20141002
  Serious: Yes (Other)
  Sender: FDA-Public Use
  Company Number: 163-21880-12113445

PATIENT
  Age: 85 Year
  Sex: Female
  Weight: 71.7 kg

DRUGS (7)
  1. REVLIMID (LENALIDOMIDE) (10 MILLIGRAM, CAPSULES) [Suspect]
     Indication: 5Q MINUS SYNDROME
     Dosage: 10 MG, 28 IN 28 D, PO
     Route: 048
     Dates: start: 20120905
  2. MULTIVITAMINS (MULTIVITAMINS) (TABLETS) [Concomitant]
  3. BILBERRY (MYRTILLUS) (CAPSULES) [Concomitant]
  4. COQ10 (UBIDECARENONE) [Concomitant]
  5. CALCIUM 600 + D3 (LEKOVIT CA) [Concomitant]
  6. LIPITOR (ATORVASTATIN) (TABLETS) [Concomitant]
  7. SYNTHROID (LEVOTHYROZINE SODIUM) (TABLETS) [Concomitant]

REACTIONS (3)
  - Red blood cell count decreased [None]
  - Platelet count decreased [None]
  - White blood cell count decreased [None]
